FAERS Safety Report 8165831-3 (Version None)
Quarter: 2012Q1

REPORT INFORMATION
  Report Type: 
  Country: None (occurrence: None)
  Receive Date: 20120103
  Receipt Date: 20111109
  Transmission Date: 20120608
  Serious: No
  Sender: FDA-Public Use
  Company Number: AE-2011-002508

PATIENT
  Age: 62 Year
  Sex: Male
  Weight: 68.0396 kg

DRUGS (6)
  1. RIBAVIRIN [Concomitant]
  2. PREZISTA [Concomitant]
  3. NORVIR [Concomitant]
  4. TREVADA (ANTIVIRALS FOR SYSTEMIC USE) [Concomitant]
  5. INCIVEK [Suspect]
     Dosage: 2250 MG (750 MG,1 IN 8 HR)
     Dates: start: 20110902
  6. INTERFERON [Concomitant]

REACTIONS (3)
  - ANAEMIA [None]
  - CHILLS [None]
  - PYREXIA [None]
